FAERS Safety Report 4414518-9 (Version None)
Quarter: 2004Q2

REPORT INFORMATION
  Report Type: 
  Country: None (occurrence: None)
  Receive Date: 20040630
  Receipt Date: 20030630
  Transmission Date: 20050107
  Serious: Yes (Other)
  Sender: FDA-Public Use
  Company Number: 2003007949

PATIENT
  Sex: Female

DRUGS (2)
  1. ZOLOFT [Suspect]
     Indication: HOT FLUSH
     Dosage: 50 MG (DAILY), ORAL
     Route: 048
     Dates: start: 20030105, end: 20030301
  2. LANSOPRAZOLE [Concomitant]

REACTIONS (7)
  - CARDIAC DISORDER [None]
  - DYSPNOEA [None]
  - FLUSHING [None]
  - HYPERSENSITIVITY [None]
  - INFLUENZA LIKE ILLNESS [None]
  - PRURITUS [None]
  - SWELLING [None]
